FAERS Safety Report 8511786-9 (Version None)
Quarter: 2012Q3

REPORT INFORMATION
  Report Type: 
  Country: None (occurrence: None)
  Receive Date: 20120711
  Receipt Date: 20120711
  Transmission Date: 20120928
  Serious: Yes (Other)
  Sender: FDA-Public Use
  Company Number: None

PATIENT
  Age: 65 Year
  Sex: Male
  Weight: 73 kg

DRUGS (1)
  1. RETINOL [Suspect]
     Dosage: HEAD OF PIN SIZE, 1X, TOPICAL
     Route: 061
     Dates: start: 20120604, end: 20120604

REACTIONS (4)
  - EYE DISORDER [None]
  - VITREOUS FLOATERS [None]
  - ACCIDENTAL EXPOSURE [None]
  - VISUAL IMPAIRMENT [None]
